FAERS Safety Report 14005367 (Version 1)
Quarter: 2017Q3

REPORT INFORMATION
  Report Type: Spontaneous
  Country: PT (occurrence: PT)
  Receive Date: 20170922
  Receipt Date: 20170922
  Transmission Date: 20171128
  Serious: Yes (Other)
  Sender: FDA-Public Use
  Company Number: PT-PFIZER INC-2017406636

PATIENT
  Age: 52 Year
  Sex: Female

DRUGS (1)
  1. ZITHROMAX [Suspect]
     Active Substance: AZITHROMYCIN DIHYDRATE
     Indication: RESPIRATORY TRACT INFECTION
     Dosage: UNK
     Route: 048
     Dates: start: 2007

REACTIONS (3)
  - Hypersensitivity [Recovered/Resolved]
  - Feeling hot [Recovered/Resolved]
  - Generalised erythema [Recovered/Resolved]

NARRATIVE: CASE EVENT DATE: 2007
